FAERS Safety Report 21914362 (Version 1)
Quarter: 2023Q1

REPORT INFORMATION
  Report Type: Spontaneous
  Country: GB (occurrence: GB)
  Receive Date: 20230126
  Receipt Date: 20230126
  Transmission Date: 20230417
  Serious: Yes (Other)
  Sender: FDA-Public Use
  Company Number: GB-MHRA-ADR 27619422

PATIENT
  Sex: Female

DRUGS (1)
  1. METRONIDAZOLE [Suspect]
     Active Substance: METRONIDAZOLE
     Indication: Tooth abscess
     Dosage: 400 MILLIGRAM
     Route: 065

REACTIONS (5)
  - Somnolence [Unknown]
  - Dysgeusia [Unknown]
  - Chromaturia [Unknown]
  - Nausea [Unknown]
  - Decreased appetite [Unknown]
